FAERS Safety Report 22621134 (Version 1)
Quarter: 2023Q2

REPORT INFORMATION
  Report Type: Spontaneous
  Country: US (occurrence: None)
  Receive Date: 20230616
  Receipt Date: 20230616
  Transmission Date: 20230721
  Serious: Yes (Life-Threatening)
  Sender: FDA-Public Use
  Company Number: None

PATIENT
  Age: 32 Year
  Sex: Male
  Weight: 74.84 kg

DRUGS (20)
  1. WARFARIN [Suspect]
     Active Substance: WARFARIN
  2. ZONISAMIDE [Concomitant]
     Active Substance: ZONISAMIDE
  3. ASPIRIN [Concomitant]
     Active Substance: ASPIRIN
  4. ATORVASTATIN [Concomitant]
     Active Substance: ATORVASTATIN
  5. NORVASC [Concomitant]
     Active Substance: AMLODIPINE BESYLATE
  6. CORLANOR [Concomitant]
     Active Substance: IVABRADINE HYDROCHLORIDE
  7. VYVANSE [Concomitant]
     Active Substance: LISDEXAMFETAMINE DIMESYLATE
  8. LORATADINE [Concomitant]
     Active Substance: LORATADINE
  9. FLUOXETINE [Concomitant]
     Active Substance: FLUOXETINE HYDROCHLORIDE
  10. DIETARY SUPPLEMENT [Concomitant]
     Active Substance: DIETARY SUPPLEMENT
  11. VITAMIN D3 [Concomitant]
     Active Substance: CHOLECALCIFEROL
  12. VITAMINS [Concomitant]
     Active Substance: VITAMINS
  13. VITAMIN B COMPLEX [Concomitant]
     Active Substance: CYANOCOBALAMIN\DEXPANTHENOL\NIACINAMIDE\PYRIDOXINE HYDROCHLORIDE\RIBOFLAVIN 5^-PHOSPHATE SODIUM\THIA
  14. VITAMIN E [Concomitant]
     Active Substance: .ALPHA.-TOCOPHEROL
  15. MAGNESIUM MALATE [Concomitant]
     Active Substance: MAGNESIUM MALATE
  16. FLAXSEED [Concomitant]
     Active Substance: FLAX SEED
  17. MELATONIN [Concomitant]
     Active Substance: MELATONIN
  18. THEANINE [Concomitant]
     Active Substance: THEANINE
  19. VALERIAN [Concomitant]
     Active Substance: VALERIAN
  20. BENADRYL [Concomitant]
     Active Substance: DIPHENHYDRAMINE HYDROCHLORIDE

REACTIONS (4)
  - Cerebrovascular accident [None]
  - Device information output issue [None]
  - Seizure like phenomena [None]
  - International normalised ratio increased [None]

NARRATIVE: CASE EVENT DATE: 20230607
